FAERS Safety Report 10176132 (Version 1)
Quarter: 2014Q2

REPORT INFORMATION
  Report Type: Spontaneous
  Country: US (occurrence: None)
  Receive Date: 20140416
  Receipt Date: 20140416
  Transmission Date: 20141212
  Serious: No
  Sender: FDA-Public Use
  Company Number: 163-POMAL-13114370

PATIENT
  Age: 74 Year
  Sex: Male

DRUGS (2)
  1. POMALYST (POMALIDOMDIE) (4 MILLIGRAM, CAPSULES) [Suspect]
     Indication: PLASMA CELL MYELOMA
     Dosage: 1 IN 1 D
     Route: 048
     Dates: start: 201306
  2. ASA (ACETYLSALICYLIC ACID) [Concomitant]

REACTIONS (1)
  - Haematuria [None]
